FAERS Safety Report 15139527 (Version 1)
Quarter: 2018Q3

REPORT INFORMATION
  Report Type: Spontaneous
  Country: US (occurrence: US)
  Receive Date: 20180713
  Receipt Date: 20180713
  Transmission Date: 20181010
  Serious: No
  Sender: FDA-Public Use
  Company Number: US-BAYER-2018-130817

PATIENT
  Age: 53 Year
  Sex: Female

DRUGS (3)
  1. MIRENA [Suspect]
     Active Substance: LEVONORGESTREL
     Indication: MENORRHAGIA
     Dosage: 20 MCG/24HR, CONT
     Route: 015
  2. PROGESTERONE. [Concomitant]
     Active Substance: PROGESTERONE
  3. ESTROGEN [Concomitant]
     Active Substance: ESTROGENS

REACTIONS (1)
  - Weight increased [None]
